FAERS Safety Report 11749626 (Version 2)
Quarter: 2015Q4

REPORT INFORMATION
  Report Type: Spontaneous
  Country: US (occurrence: US)
  Receive Date: 20151118
  Receipt Date: 20151121
  Transmission Date: 20160304
  Serious: No
  Sender: FDA-Public Use
  Company Number: US-009507513-1511USA001432

PATIENT
  Age: 17 Year
  Sex: Female
  Weight: 58.96 kg

DRUGS (1)
  1. NEXPLANON [Suspect]
     Active Substance: ETONOGESTREL
     Indication: CONTRACEPTION
     Dosage: 68MG (1 ROD) PER 3 YEARS
     Route: 059
     Dates: start: 20151016

REACTIONS (1)
  - Implant site bruising [Recovered/Resolved]

NARRATIVE: CASE EVENT DATE: 20151017
